FAERS Safety Report 26137192 (Version 2)
Quarter: 2025Q4

REPORT INFORMATION
  Report Type: Spontaneous
  Country: EU (occurrence: EU)
  Receive Date: 20251209
  Receipt Date: 20251212
  Transmission Date: 20260117
  Serious: Yes (Other)
  Sender: MERCK SHARP & DOHME LLC
  Company Number: EU-009507513-2356442

PATIENT
  Age: 60 Year
  Sex: Female

DRUGS (3)
  1. PEMBROLIZUMAB [Suspect]
     Active Substance: PEMBROLIZUMAB
     Indication: Lung squamous cell carcinoma metastatic
     Dates: start: 202411
  2. PACLITAXEL [Suspect]
     Active Substance: PACLITAXEL
     Indication: Lung squamous cell carcinoma metastatic
     Dates: start: 202411
  3. CARBOPLATIN [Suspect]
     Active Substance: CARBOPLATIN
     Indication: Lung squamous cell carcinoma metastatic
     Dates: start: 202411

REACTIONS (7)
  - Chronic kidney disease [Unknown]
  - Diarrhoea [Unknown]
  - Fatigue [Unknown]
  - Haemoptysis [Unknown]
  - Hypertension [Unknown]
  - Hypoacusis [Unknown]
  - Neuropathy peripheral [Unknown]
